FAERS Safety Report 6712957-4 (Version None)
Quarter: 2010Q2

REPORT INFORMATION
  Report Type: 
  Country: None (occurrence: None)
  Receive Date: 20100506
  Receipt Date: 20100429
  Transmission Date: 20101027
  Serious: Yes (Other)
  Sender: FDA-Public Use
  Company Number: GB-NOVOPROD-300274

PATIENT
  Sex: Male
  Weight: 77.7 kg

DRUGS (9)
  1. NOVOLOG MIX 70/30 [Suspect]
     Indication: TYPE 2 DIABETES MELLITUS
     Dosage: 52 IU, QD
     Route: 058
     Dates: start: 20060216, end: 20090630
  2. CHEMOTHERAPEUTICS NOS [Concomitant]
     Indication: DRUG USE FOR UNKNOWN INDICATION
     Dosage: UNK
     Dates: start: 20060216
  3. VITAMIN B-12 [Concomitant]
     Indication: ASTHMA
  4. ISOSORBIDE MONONITRATE [Concomitant]
     Dosage: 20 MG, BID
     Route: 048
     Dates: start: 19991001
  5. BISOPROLOL [Concomitant]
     Dosage: 5 MG, BID
     Route: 048
     Dates: start: 19991001
  6. QUINAPRIL [Concomitant]
     Dosage: 20 MG, QD
     Route: 048
     Dates: start: 19940831
  7. SIMVASTATIN [Concomitant]
     Dosage: 40 MG, QD
     Route: 048
     Dates: start: 20051121
  8. GLUCOPHAGE [Concomitant]
     Dosage: 500 MG, QID
     Route: 048
     Dates: start: 20070514
  9. VENTOLIN [Concomitant]
     Dosage: UNK
     Dates: start: 20081124

REACTIONS (4)
  - INJECTION SITE URTICARIA [None]
  - PALLOR [None]
  - PARAESTHESIA [None]
  - RASH PRURITIC [None]
